FAERS Safety Report 8247284-X (Version None)
Quarter: 2012Q1

REPORT INFORMATION
  Report Type: 
  Country: None (occurrence: None)
  Receive Date: 20120330
  Receipt Date: 20120326
  Transmission Date: 20120608
  Serious: Yes (Other)
  Sender: FDA-Public Use
  Company Number: US-PFIZER INC-2012077267

PATIENT

DRUGS (1)
  1. CADUET [Suspect]
     Dosage: UNK

REACTIONS (3)
  - DIABETES MELLITUS [None]
  - PAIN [None]
  - STENT PLACEMENT [None]
